FAERS Safety Report 15897301 (Version 1)
Quarter: 2019Q1

REPORT INFORMATION
  Report Type: Spontaneous
  Country: US (occurrence: US)
  Receive Date: 20190131
  Receipt Date: 20190131
  Transmission Date: 20190417
  Serious: Yes (Other)
  Sender: FDA-Public Use
  Company Number: US-GILEAD-2019-0387705

PATIENT
  Age: 52 Year
  Sex: Male

DRUGS (2)
  1. TRUVADA [Suspect]
     Active Substance: EMTRICITABINE\TENOFOVIR DISOPROXIL FUMARATE
     Indication: PROPHYLAXIS AGAINST HIV INFECTION
     Dosage: UNK
     Route: 065
     Dates: start: 201812
  2. TESTOSTERONE. [Concomitant]
     Active Substance: TESTOSTERONE

REACTIONS (3)
  - Glomerular filtration rate decreased [Unknown]
  - Blood sodium increased [Unknown]
  - Blood potassium increased [Unknown]
